FAERS Safety Report 7624581-X (Version None)
Quarter: 2011Q3

REPORT INFORMATION
  Report Type: 
  Country: None (occurrence: None)
  Receive Date: 20110720
  Receipt Date: 20090221
  Transmission Date: 20111222
  Serious: Yes (Death, Hospitalization)
  Sender: FDA-Public Use
  Company Number: US-BAYER-200913252NA

PATIENT
  Age: 73 Year
  Sex: Female
  Weight: 72 kg

DRUGS (42)
  1. CAPOTEN [Concomitant]
     Indication: HYPERTENSION
     Dosage: 25 MG, TID
     Route: 048
     Dates: end: 20011201
  2. OMNIPAQUE 140 [Concomitant]
     Indication: ANGIOGRAM
  3. PLATELETS [Concomitant]
     Dosage: 10 U, UNK
     Route: 042
     Dates: start: 20011204, end: 20011204
  4. TRASYLOL [Suspect]
     Indication: CORONARY ARTERY BYPASS
     Dosage: 1 ML, ONCE, INITIAL TEST DOSE
     Route: 042
     Dates: start: 20011204, end: 20011204
  5. ALTACE [Concomitant]
     Indication: HYPERTENSION
     Route: 048
  6. SEREVENT [Concomitant]
     Dosage: TWO INHALATIONS TWICE PER DAY
  7. ELAVIL [Concomitant]
     Dosage: 10 MG AT BEDTIME
     Route: 048
  8. COREG [Concomitant]
     Dosage: 3.125 MG, UNK
     Route: 048
     Dates: start: 20011118
  9. NORVASC [Concomitant]
     Dosage: 1 TABLET DAILY
     Route: 048
     Dates: start: 20011122
  10. RED BLOOD CELLS [Concomitant]
     Dosage: 3 U, UNK
     Route: 042
     Dates: start: 20011204, end: 20011204
  11. TRASYLOL [Suspect]
     Dosage: 200 ML PRIME
     Route: 042
     Dates: start: 20011204, end: 20011204
  12. VANCOMYCIN [Concomitant]
     Dosage: 1 G, UNK
     Route: 042
     Dates: start: 20011203, end: 20011203
  13. DOBUTREX [Concomitant]
     Dosage: UNK
     Route: 042
     Dates: start: 20011116, end: 20011126
  14. FENTANYL-100 [Concomitant]
     Dosage: 100 MG, UNK
     Route: 042
     Dates: start: 20011204, end: 20011204
  15. OMNIPAQUE 140 [Concomitant]
     Indication: ARTERIOGRAM CAROTID
     Dosage: 136 CC
     Dates: start: 20011124
  16. ROCURONIUM BROMIDE [Concomitant]
     Dosage: 100 MG, UNK
     Route: 042
     Dates: start: 20011204, end: 20011204
  17. CELEBREX [Concomitant]
     Indication: ARTHRITIS
  18. AZITHROMYCIN [Concomitant]
     Dosage: 500 MG/24HR, UNK
     Route: 042
     Dates: start: 20011116, end: 20011123
  19. MIDAZOLAM HCL [Concomitant]
     Dosage: 5 MG, UNK
     Route: 042
     Dates: start: 20011204, end: 20011204
  20. SUFENTANIL CITRATE [Concomitant]
     Dosage: 10 MCG
     Route: 042
     Dates: start: 20011204, end: 20011204
  21. PROTAMINE SULFATE [Concomitant]
     Dosage: 5 MG, UNK
     Route: 042
     Dates: start: 20011204, end: 20011204
  22. CONTRAST MEDIA [Concomitant]
  23. ALBUMIN (HUMAN) [Concomitant]
     Dosage: 50 G, UNK
     Route: 042
     Dates: start: 20011204, end: 20011204
  24. TRASYLOL [Suspect]
     Dosage: 200 ML BOLUS
     Route: 042
     Dates: start: 20011204, end: 20011204
  25. LASIX [Concomitant]
     Dosage: VARIOUS DOSES
     Route: 042
     Dates: start: 20011001
  26. ACETYLSALICYLIC ACID SRT [Concomitant]
     Dosage: 81 MG, UNK
     Route: 048
  27. HYDRALAZINE HCL [Concomitant]
     Dosage: 25 MG, EVERY 8 HOURS
     Route: 048
     Dates: start: 20011201
  28. PHENYLEPHRINE HCL [Concomitant]
     Dosage: 10/100 DRIP
     Route: 042
     Dates: start: 20011204, end: 20011210
  29. CONTRAST MEDIA [Concomitant]
     Indication: CARDIAC VENTRICULOGRAM
  30. TISSEEL KIT [Concomitant]
     Dosage: 50 CC
     Dates: start: 20011204, end: 20011204
  31. TRASYLOL [Suspect]
     Dosage: 5O ML/HR INFUSION
     Route: 042
     Dates: start: 20011204, end: 20011204
  32. CONTRAST MEDIA [Concomitant]
     Indication: ANGIOGRAM
  33. FLUCONAZOLE [Concomitant]
     Dosage: UNK
     Dates: start: 20011213
  34. LASIX [Concomitant]
     Dosage: 40 MG, UNK
     Route: 042
     Dates: start: 20011204, end: 20011204
  35. PREDNISONE [Concomitant]
     Dosage: 20 MG/24HR, UNK
     Route: 048
     Dates: start: 20011116, end: 20011121
  36. HEPARIN [Concomitant]
     Dosage: 5000 U, UNK
     Dates: start: 20011204, end: 20011204
  37. BENADRYL [Concomitant]
     Dosage: UNK
     Dates: start: 20011124
  38. LASIX [Concomitant]
     Indication: DIURETIC THERAPY
     Dosage: UNK
     Route: 048
     Dates: start: 20011001
  39. TRIMPEX [Concomitant]
     Indication: URINARY TRACT INFECTION
     Dosage: TWICE A WEEK
     Route: 048
  40. ANCEF [Concomitant]
     Dosage: 2 G, UNK
     Route: 042
     Dates: start: 20011204, end: 20011204
  41. ATROPINE [Concomitant]
     Dosage: 1600 MCG
     Route: 042
     Dates: start: 20011204, end: 20011204
  42. CONTRAST MEDIA [Concomitant]
     Indication: CATHETERISATION CARDIAC
     Dosage: 110 CC
     Dates: start: 20011121

REACTIONS (2)
  - RENAL FAILURE [None]
  - INJURY [None]
